FAERS Safety Report 9830573 (Version 1)
Quarter: 2014Q1

REPORT INFORMATION
  Report Type: Spontaneous
  Country: US (occurrence: US)
  Receive Date: 20140120
  Receipt Date: 20140120
  Transmission Date: 20141002
  Serious: No
  Sender: FDA-Public Use
  Company Number: US-009507513-1401USA004044

PATIENT
  Sex: 0
  Weight: 75.74 kg

DRUGS (2)
  1. NEXPLANON [Suspect]
     Dosage: 1 UNK, UNK
     Route: 059
     Dates: start: 20131230, end: 20131230
  2. NEXPLANON [Suspect]
     Dosage: UNK
     Route: 059
     Dates: start: 20131230

REACTIONS (3)
  - Device difficult to use [Recovered/Resolved]
  - No adverse event [Unknown]
  - Product quality issue [Unknown]
